FAERS Safety Report 11269373 (Version 9)
Quarter: 2015Q4

REPORT INFORMATION
  Report Type: Report from Study
  Country: US (occurrence: US)
  Receive Date: 20150714
  Receipt Date: 20151119
  Transmission Date: 20160304
  Serious: Yes (Hospitalization, Other)
  Sender: FDA-Public Use
  Company Number: US-AMGEN-USASL2015068328

PATIENT
  Age: 61 Year
  Sex: Male

DRUGS (2)
  1. ENBREL [Suspect]
     Active Substance: ETANERCEPT
     Indication: PSORIATIC ARTHROPATHY
     Dosage: 50 MG, QWK
     Route: 065
     Dates: start: 201309, end: 201508
  2. ENBREL [Suspect]
     Active Substance: ETANERCEPT
     Indication: PSORIASIS

REACTIONS (7)
  - Retching [Not Recovered/Not Resolved]
  - Immunosuppression [Unknown]
  - Arthralgia [Not Recovered/Not Resolved]
  - Cough [Not Recovered/Not Resolved]
  - Malaise [Not Recovered/Not Resolved]
  - Pneumonia [Unknown]
  - Hospitalisation [Unknown]

NARRATIVE: CASE EVENT DATE: 2015
